FAERS Safety Report 10252821 (Version 1)
Quarter: 2014Q2

REPORT INFORMATION
  Report Type: Spontaneous
  Country: US (occurrence: US)
  Receive Date: 20140623
  Receipt Date: 20140623
  Transmission Date: 20141212
  Serious: No
  Sender: FDA-Public Use
  Company Number: US-PFIZER INC-2014168181

PATIENT
  Sex: Female

DRUGS (15)
  1. PROTONIX [Suspect]
     Dosage: UNK
  2. NORVASC [Suspect]
     Dosage: UNK
  3. TOVIAZ [Suspect]
     Dosage: UNK
  4. ATENOLOL [Suspect]
     Dosage: UNK
  5. SULFASALAZINE [Suspect]
     Dosage: UNK
  6. TENORMIN [Suspect]
     Dosage: UNK
  7. AMLODIPINE BESILATE [Suspect]
     Dosage: UNK
  8. FENTANYL [Suspect]
     Dosage: UNK
  9. BENADRYL [Suspect]
     Dosage: UNK
  10. VITAMIN D3 [Suspect]
     Dosage: UNK
  11. COMPAZINE [Suspect]
     Dosage: UNK
  12. LOTENSIN [Suspect]
     Dosage: UNK
  13. MELATONIN [Suspect]
     Dosage: UNK
  14. VALTREX [Suspect]
     Dosage: UNK
  15. RESTORIL [Suspect]
     Dosage: UNK

REACTIONS (1)
  - Drug hypersensitivity [Unknown]
